FAERS Safety Report 13009588 (Version 1)
Quarter: 2016Q4

REPORT INFORMATION
  Report Type: Spontaneous
  Country: FR (occurrence: FR)
  Receive Date: 20161208
  Receipt Date: 20161208
  Transmission Date: 20170207
  Serious: Yes (Hospitalization)
  Sender: FDA-Public Use
  Company Number: FR-JNJFOC-20161202853

PATIENT
  Age: 51 Year
  Sex: Male

DRUGS (1)
  1. YONDELIS [Suspect]
     Active Substance: TRABECTEDIN
     Indication: SARCOMA
     Route: 042
     Dates: start: 20161110, end: 20161111

REACTIONS (3)
  - Injection site erythema [Recovered/Resolved]
  - Injection site extravasation [Recovered/Resolved]
  - Injection site oedema [Recovered/Resolved]

NARRATIVE: CASE EVENT DATE: 20161111
